FAERS Safety Report 25794939 (Version 2)
Quarter: 2025Q3

REPORT INFORMATION
  Report Type: Spontaneous
  Country: US (occurrence: US)
  Receive Date: 20250912
  Receipt Date: 20250921
  Transmission Date: 20251021
  Serious: No
  Sender: ABBVIE
  Company Number: US-ABBVIE-6455505

PATIENT
  Age: 40 Year
  Sex: Female

DRUGS (1)
  1. LILETTA [Suspect]
     Active Substance: LEVONORGESTREL
     Indication: Product used for unknown indication
     Route: 015

REACTIONS (3)
  - Uterine cervix stenosis [Unknown]
  - Complication of device insertion [Unknown]
  - Post procedural discomfort [Unknown]

NARRATIVE: CASE EVENT DATE: 20250905
